FAERS Safety Report 5091022-9 (Version None)
Quarter: 2006Q3

REPORT INFORMATION
  Report Type: 
  Country: None (occurrence: None)
  Receive Date: 20060829
  Receipt Date: 20060111
  Transmission Date: 20061208
  Serious: Yes (Hospitalization)
  Sender: FDA-Public Use
  Company Number: US-GLAXOSMITHKLINE-A0588808A

PATIENT
  Age: 45 Year
  Sex: Female

DRUGS (2)
  1. ZOVIRAX [Suspect]
     Dosage: 400MG PER DAY
     Route: 048
  2. MOTRIN [Concomitant]

REACTIONS (2)
  - HAEMATURIA [None]
  - RENAL IMPAIRMENT [None]
